FAERS Safety Report 20356435 (Version 1)
Quarter: 2022Q1

REPORT INFORMATION
  Report Type: Report from Study
  Country: CA (occurrence: CA)
  Receive Date: 20220120
  Receipt Date: 20220120
  Transmission Date: 20220423
  Serious: Yes (Hospitalization, Other)
  Sender: FDA-Public Use
  Company Number: CA-PFIZER INC-202200026098

PATIENT
  Age: 69 Year
  Sex: Male
  Weight: 76 kg

DRUGS (14)
  1. INLYTA [Suspect]
     Active Substance: AXITINIB
     Dosage: 5 MG
     Route: 065
  2. INLYTA [Suspect]
     Active Substance: AXITINIB
     Dosage: UNK
     Route: 065
  3. INLYTA [Suspect]
     Active Substance: AXITINIB
     Dosage: UNK
     Route: 065
  4. DEXILANT [Suspect]
     Active Substance: DEXLANSOPRAZOLE
     Dosage: UNK
     Route: 065
  5. DEXILANT [Suspect]
     Active Substance: DEXLANSOPRAZOLE
     Dosage: UNK
     Route: 065
  6. PEMBROLIZUMAB [Suspect]
     Active Substance: PEMBROLIZUMAB
     Indication: Metastatic renal cell carcinoma
     Dosage: 200 MG, EVERY 3 WEEKS
     Route: 042
  7. PEMBROLIZUMAB [Suspect]
     Active Substance: PEMBROLIZUMAB
     Dosage: 200 MG, EVERY 3 WEEKS
     Route: 042
  8. PEMBROLIZUMAB [Suspect]
     Active Substance: PEMBROLIZUMAB
     Dosage: 200 MG, EVERY 3 WEEKS
     Route: 042
  9. PEMBROLIZUMAB [Suspect]
     Active Substance: PEMBROLIZUMAB
     Dosage: 200 MG, EVERY 3 WEEKS
     Route: 042
  10. PEMBROLIZUMAB [Suspect]
     Active Substance: PEMBROLIZUMAB
     Indication: Metastatic renal cell carcinoma
     Dosage: 200 MG, EVERY 3 WEEKS
     Route: 042
  11. SULFADIAZINE\TRIMETHOPRIM [Suspect]
     Active Substance: SULFADIAZINE\TRIMETHOPRIM
     Dosage: UNK
     Route: 065
  12. SULFADIAZINE\TRIMETHOPRIM [Suspect]
     Active Substance: SULFADIAZINE\TRIMETHOPRIM
     Dosage: UNK
     Route: 065
  13. DICLOFENAC [Concomitant]
     Active Substance: DICLOFENAC
     Dosage: UNK
     Route: 065
  14. DICLOFENAC [Concomitant]
     Active Substance: DICLOFENAC
     Dosage: UNK
     Route: 065

REACTIONS (21)
  - Blood pressure abnormal [Unknown]
  - Oropharyngeal pain [Unknown]
  - Renal failure [Unknown]
  - Arthralgia [Unknown]
  - Cough [Unknown]
  - Decreased appetite [Unknown]
  - Dehydration [Unknown]
  - Diarrhoea [Unknown]
  - Dyspnoea [Unknown]
  - Fatigue [Unknown]
  - Headache [Unknown]
  - Myalgia [Unknown]
  - Nausea [Unknown]
  - Weight decreased [Unknown]
  - Cystoscopy [Unknown]
  - Pollakiuria [Unknown]
  - Pyrexia [Unknown]
  - Rhinorrhoea [Unknown]
  - Rotator cuff syndrome [Unknown]
  - Urinary tract infection [Unknown]
  - Inappropriate schedule of product administration [Unknown]
